FAERS Safety Report 8680039 (Version 4)
Quarter: 2013Q2

REPORT INFORMATION
  Report Type: Spontaneous
  Country: US (occurrence: IE)
  Receive Date: 20120724
  Receipt Date: 20130531
  Transmission Date: 20140414
  Serious: Yes (Other)
  Sender: FDA-Public Use
  Company Number: IE-009507513-1207IRL007778

PATIENT
  Age: 8 Year
  Sex: Male

DRUGS (4)
  1. SINGULAIR PAEDIATRIC 5 MG CHEWABLE TABLETS [Suspect]
     Dosage: 5 MG, QD
     Route: 048
     Dates: start: 20111213
  2. BECLAZONE [Concomitant]
     Dosage: 2 DF, BID
     Route: 055
  3. SALAMOL [Concomitant]
  4. ERYTHROMYCIN [Concomitant]

REACTIONS (3)
  - Abnormal behaviour [Recovered/Resolved]
  - Mood altered [Recovered/Resolved]
  - Aggression [Recovered/Resolved]
